FAERS Safety Report 25064035 (Version 1)
Quarter: 2025Q1

REPORT INFORMATION
  Report Type: Other
  Country: US (occurrence: US)
  Receive Date: 20250311
  Receipt Date: 20250311
  Transmission Date: 20250409
  Serious: Yes (Hospitalization)
  Sender: COREPHARMA LLC
  Company Number: US-CorePharma LLC-2172680

PATIENT
  Age: 17 Year
  Sex: Female

DRUGS (22)
  1. DICYCLOMINE HYDROCHLORIDE [Suspect]
     Active Substance: DICYCLOMINE HYDROCHLORIDE
     Indication: Product used for unknown indication
  2. GABAPENTIN [Suspect]
     Active Substance: GABAPENTIN
  3. POLYETHYLENE GLYCOL 3350 [Concomitant]
     Active Substance: POLYETHYLENE GLYCOL 3350
  4. FLUTICASONE PROPIONATE [Concomitant]
     Active Substance: FLUTICASONE PROPIONATE
  5. SODIUM CHLORIDE [Concomitant]
     Active Substance: SODIUM CHLORIDE
  6. ALBUTEROL [Concomitant]
     Active Substance: ALBUTEROL
  7. VITAMINS [Suspect]
     Active Substance: VITAMINS
  8. LURASIDONE [Suspect]
     Active Substance: LURASIDONE
  9. MIRTAZAPINE [Suspect]
     Active Substance: MIRTAZAPINE
  10. SERTRALINE [Suspect]
     Active Substance: SERTRALINE HYDROCHLORIDE
  11. FERROUS SULFATE [Suspect]
     Active Substance: FERROUS SULFATE
  12. TRANEXAMIC ACID [Suspect]
     Active Substance: TRANEXAMIC ACID
  13. DROSPIRENONE [Suspect]
     Active Substance: DROSPIRENONE
  14. DOCUSATE SODIUM - SENNOSIDES [Suspect]
     Active Substance: DOCUSATE SODIUM\SENNOSIDES
  15. LACTOBACILLUS ACIDOPHILUS [Suspect]
     Active Substance: LACTOBACILLUS ACIDOPHILUS
  16. ONDANSETRON [Suspect]
     Active Substance: ONDANSETRON
  17. URSODIOL [Suspect]
     Active Substance: URSODIOL
  18. OMEPRAZOLE [Suspect]
     Active Substance: OMEPRAZOLE
  19. FAMOTIDINE [Suspect]
     Active Substance: FAMOTIDINE
  20. PANCRELIPASE [Suspect]
     Active Substance: PANCRELIPASE
  21. ELEXACAFTOR\IVACAFTOR\TEZACAFTOR [Suspect]
     Active Substance: ELEXACAFTOR\IVACAFTOR\TEZACAFTOR
  22. CETIRIZINE [Suspect]
     Active Substance: CETIRIZINE HYDROCHLORIDE

REACTIONS (2)
  - Food allergy [Recovering/Resolving]
  - Allergic reaction to excipient [Recovering/Resolving]
